FAERS Safety Report 10086057 (Version 3)
Quarter: 2014Q2

REPORT INFORMATION
  Report Type: Spontaneous
  Country: IT (occurrence: None)
  Receive Date: 20140415
  Receipt Date: 20140602
  Transmission Date: 20141212
  Serious: Yes (Hospitalization)
  Sender: FDA-Public Use
  Company Number: 2204784

PATIENT
  Age: 67 Year
  Sex: Female

DRUGS (13)
  1. OXALIPLATIN [Suspect]
     Indication: RECTAL CANCER
     Dosage: 200 MG MILLIGRAMS, CYCLICAL, INTRAVENOUS (NOT OTHERWISE SPECIFIED)?
     Route: 042
     Dates: start: 20131203, end: 20140122
  2. EPOETIN ZETA [Concomitant]
  3. CARDICOR [Concomitant]
  4. NITRODERM [Concomitant]
  5. LAEVOLAC [Concomitant]
  6. DUROGESIC [Concomitant]
  7. ALBUMINE BAXTER [Concomitant]
  8. ZIRTEC [Concomitant]
  9. CARDIOASPIRIN [Concomitant]
  10. ANTRA /00661201/ [Concomitant]
  11. ACICLOVIR [Concomitant]
  12. SOLDESAM [Concomitant]
  13. FERLIXIT [Concomitant]

REACTIONS (7)
  - Atrial fibrillation [None]
  - Respiratory failure [None]
  - Chest discomfort [None]
  - Vomiting [None]
  - Throat irritation [None]
  - Hyperhidrosis [None]
  - Throat irritation [None]
